FAERS Safety Report 8427556-6 (Version None)
Quarter: 2012Q2

REPORT INFORMATION
  Report Type: 
  Country: None (occurrence: None)
  Receive Date: 20120611
  Receipt Date: 20120404
  Transmission Date: 20120825
  Serious: Yes (Hospitalization, Disabling, Other)
  Sender: FDA-Public Use
  Company Number: GR-ASTRAZENECA-2012SE22608

PATIENT
  Age: 65 Year
  Sex: Female

DRUGS (2)
  1. GLYCOPROTEIN IIB/IIIA INHIBITOR [Concomitant]
     Indication: ACUTE CORONARY SYNDROME
     Route: 042
     Dates: start: 20120329
  2. BRILINTA [Suspect]
     Indication: ACUTE CORONARY SYNDROME
     Route: 048
     Dates: start: 20120329, end: 20120329

REACTIONS (2)
  - HEMIPLEGIA [None]
  - CEREBRAL HAEMORRHAGE [None]
